FAERS Safety Report 6534722-3 (Version None)
Quarter: 2010Q1

REPORT INFORMATION
  Report Type: 
  Country: None (occurrence: None)
  Receive Date: 20100112
  Receipt Date: 20100105
  Transmission Date: 20100710
  Serious: Yes (Other)
  Sender: FDA-Public Use
  Company Number: AU-PFIZER INC-2010000685

PATIENT
  Sex: Female

DRUGS (1)
  1. CHAMPIX [Suspect]

REACTIONS (8)
  - DEPRESSED MOOD [None]
  - DISTURBANCE IN ATTENTION [None]
  - INCREASED APPETITE [None]
  - LETHARGY [None]
  - NAUSEA [None]
  - SOMNOLENCE [None]
  - THERMAL BURN [None]
  - WEIGHT INCREASED [None]
